FAERS Safety Report 4694778-X (Version None)
Quarter: 2005Q2

REPORT INFORMATION
  Report Type: 
  Country: None (occurrence: None)
  Receive Date: 20050617
  Receipt Date: 20050607
  Transmission Date: 20051028
  Serious: Yes (Other)
  Sender: FDA-Public Use
  Company Number: 215099

PATIENT
  Age: 12 Year
  Sex: Male
  Weight: 45.4 kg

DRUGS (1)
  1. NUTROPIN AQ [Suspect]
     Indication: GROWTH HORMONE DEFICIENCY
     Dosage: 1.9 MG, QD, SUBCUTANEOUS
     Route: 058
     Dates: start: 20010921, end: 20050609

REACTIONS (1)
  - PROLACTINOMA [None]
